FAERS Safety Report 4538037-4 (Version None)
Quarter: 2004Q4

REPORT INFORMATION
  Report Type: 
  Country: None (occurrence: None)
  Receive Date: 20041223
  Receipt Date: 20041223
  Transmission Date: 20050328
  Serious: Yes (Other)
  Sender: FDA-Public Use
  Company Number: None

PATIENT
  Sex: Female
  Weight: 85.7298 kg

DRUGS (1)
  1. BEXTRA [Suspect]
     Indication: FIBROMYALGIA
     Dosage: 20 MG DAILY ORAL
     Route: 048
     Dates: start: 20020810, end: 20041222

REACTIONS (4)
  - DRY SKIN [None]
  - PRURITUS [None]
  - RASH ERYTHEMATOUS [None]
  - SKIN DISCOLOURATION [None]
